FAERS Safety Report 16716555 (Version 2)
Quarter: 2019Q4

REPORT INFORMATION
  Report Type: Spontaneous
  Country: US (occurrence: US)
  Receive Date: 20190819
  Receipt Date: 20191219
  Transmission Date: 20200122
  Serious: Yes (Death, Other)
  Sender: FDA-Public Use
  Company Number: US-PFIZER INC-2019193486

PATIENT
  Age: 81 Year
  Sex: Male

DRUGS (4)
  1. IBRANCE [Suspect]
     Active Substance: PALBOCICLIB
     Indication: BONE CANCER
  2. IBRANCE [Suspect]
     Active Substance: PALBOCICLIB
     Indication: BRAIN CANCER METASTATIC
  3. IBRANCE [Suspect]
     Active Substance: PALBOCICLIB
     Indication: NON-SMALL CELL LUNG CANCER
     Dosage: 125 MG, CYCLIC
     Dates: start: 20190520, end: 20190721
  4. IBRANCE [Suspect]
     Active Substance: PALBOCICLIB
     Indication: HEPATIC CANCER

REACTIONS (6)
  - Neoplasm progression [Fatal]
  - Haemoglobin decreased [Unknown]
  - Dyspnoea [Unknown]
  - Weight decreased [Unknown]
  - Product use in unapproved indication [Unknown]
  - Off label use [Unknown]

NARRATIVE: CASE EVENT DATE: 2019
